FAERS Safety Report 25136269 (Version 1)
Quarter: 2025Q1

REPORT INFORMATION
  Report Type: Spontaneous
  Country: CN (occurrence: CN)
  Receive Date: 20250328
  Receipt Date: 20250328
  Transmission Date: 20250409
  Serious: Yes (Death, Other)
  Sender: JOHNSON AND JOHNSON
  Company Number: CN-JNJFOC-20250368682

PATIENT
  Age: 73 Year
  Sex: Female

DRUGS (2)
  1. TECVAYLI [Suspect]
     Active Substance: TECLISTAMAB-CQYV
     Indication: Plasma cell myeloma
     Route: 065
  2. DARZALEX [Suspect]
     Active Substance: DARATUMUMAB
     Indication: Plasma cell myeloma
     Route: 065

REACTIONS (5)
  - Death [Fatal]
  - Disseminated intravascular coagulation [Unknown]
  - Tumour lysis syndrome [Unknown]
  - Cytokine release syndrome [Unknown]
  - Intentional product use issue [Unknown]
